FAERS Safety Report 17780423 (Version 2)
Quarter: 2020Q2

REPORT INFORMATION
  Report Type: Spontaneous
  Country: US (occurrence: US)
  Receive Date: 20200513
  Receipt Date: 20200529
  Transmission Date: 20200714
  Serious: Yes (Hospitalization)
  Sender: FDA-Public Use
  Company Number: US-TEVA-2020-US-1234113

PATIENT
  Age: 31 Year
  Sex: Female

DRUGS (12)
  1. DULOXETINE. [Suspect]
     Active Substance: DULOXETINE
     Indication: NEURALGIA
     Dosage: 20 MILLIGRAM DAILY; EVERY MORNING
     Route: 048
  2. DIAZEPAM. [Concomitant]
     Active Substance: DIAZEPAM
     Dosage: THREE TIMES A DAY
     Route: 048
  3. DOCUSATE [Concomitant]
     Active Substance: DOCUSATE
     Dosage: MINI ENEMA; DAILY
     Route: 054
  4. NYSTATIN. [Concomitant]
     Active Substance: NYSTATIN
     Indication: DRUG THERAPY
  5. DULOXETINE. [Interacting]
     Active Substance: DULOXETINE
     Dosage: EVERY MORNING
     Route: 048
  6. ACETAMINOPHEN. [Concomitant]
     Active Substance: ACETAMINOPHEN
     Indication: NEURALGIA
     Dosage: TAKEN EVERY 8 HOURS, AS NEEDED
     Route: 048
  7. DULOXETINE. [Interacting]
     Active Substance: DULOXETINE
     Dosage: EVERY MORNING
     Route: 048
  8. GLATIRAMER ACETATE. [Concomitant]
     Active Substance: GLATIRAMER ACETATE
     Dosage: THREE TIMES A WEEK
     Route: 058
  9. AMITRIPTYLINE [Interacting]
     Active Substance: AMITRIPTYLINE
     Dosage: 20 MILLIGRAM DAILY; EVERY EVENING
     Route: 048
  10. NYSTATIN. [Concomitant]
     Active Substance: NYSTATIN
     Indication: RASH
     Dosage: DOSE: 10000 U/G; ADMINISTERED UP TO 3 TIMES A DAY AS NEEDED
     Route: 061
  11. AMITRIPTYLINE [Interacting]
     Active Substance: AMITRIPTYLINE
     Indication: NEURALGIA
     Dosage: 10 MILLIGRAM DAILY; EVERY EVENING
     Route: 048
  12. TIZANIDINE  HCL [Concomitant]
     Active Substance: TIZANIDINE HYDROCHLORIDE
     Dosage: THREE TIMES A DAY
     Route: 048

REACTIONS (3)
  - Hypertension [Recovered/Resolved]
  - Drug interaction [Recovered/Resolved]
  - Autonomic dysreflexia [Recovered/Resolved]
